FAERS Safety Report 20160594 (Version 1)
Quarter: 2021Q4

REPORT INFORMATION
  Report Type: Spontaneous
  Country: US (occurrence: None)
  Receive Date: 20211207
  Receipt Date: 20211207
  Transmission Date: 20220304
  Serious: No
  Sender: FDA-Public Use
  Company Number: None

PATIENT
  Sex: Male

DRUGS (1)
  1. HUMIRA [Suspect]
     Active Substance: ADALIMUMAB
     Indication: Sympathetic ophthalmia
     Dosage: FREQUENCY : WEEKLY;?
     Route: 058
     Dates: start: 20210527

REACTIONS (2)
  - Rash [None]
  - Arthralgia [None]
